FAERS Safety Report 4409948-5 (Version None)
Quarter: 2004Q3

REPORT INFORMATION
  Report Type: 
  Country: None (occurrence: None)
  Receive Date: 20040726
  Receipt Date: 20040713
  Transmission Date: 20050211
  Serious: Yes (Other)
  Sender: FDA-Public Use
  Company Number: 2004206089GB

PATIENT
  Age: 29 Year
  Sex: Female
  Weight: 63 kg

DRUGS (1)
  1. CLINDAMYCIN [Suspect]
     Indication: INFECTION PROPHYLAXIS
     Dosage: VAGINAL
     Route: 067
     Dates: start: 20040318, end: 20040320

REACTIONS (4)
  - BLISTER [None]
  - ERYTHEMA [None]
  - SKIN INFLAMMATION [None]
  - THERMAL BURN [None]
